FAERS Safety Report 5446547-0 (Version None)
Quarter: 2007Q3

REPORT INFORMATION
  Report Type: 
  Country: None (occurrence: None)
  Receive Date: 20070907
  Receipt Date: 20070827
  Transmission Date: 20080115
  Serious: Yes (Other)
  Sender: FDA-Public Use
  Company Number: SE-PFIZER INC-2007044936

PATIENT
  Sex: Female

DRUGS (6)
  1. NICOTROL [Suspect]
     Indication: SMOKING CESSATION THERAPY
     Dosage: TEXT:1-2 DOSES
     Route: 055
  2. LIPITOR [Concomitant]
     Indication: CEREBROVASCULAR ACCIDENT
  3. TROMBYL [Concomitant]
     Indication: ANTICOAGULANT THERAPY
  4. BRICANYL [Concomitant]
     Indication: CHRONIC OBSTRUCTIVE PULMONARY DISEASE
  5. SPIRIVA [Concomitant]
     Indication: CHRONIC OBSTRUCTIVE PULMONARY DISEASE
  6. ANTICOAGULANTS [Concomitant]

REACTIONS (3)
  - DEPENDENCE [None]
  - GINGIVAL DISORDER [None]
  - TOTAL LUNG CAPACITY DECREASED [None]
